FAERS Safety Report 6260003-1 (Version None)
Quarter: 2009Q3

REPORT INFORMATION
  Report Type: 
  Country: None (occurrence: None)
  Receive Date: 20090708
  Receipt Date: 20090630
  Transmission Date: 20100115
  Serious: Yes (Death)
  Sender: FDA-Public Use
  Company Number: KR-ASTRAZENECA-2009SE03780

PATIENT
  Age: 27064 Day
  Sex: Female
  Weight: 49.6 kg

DRUGS (4)
  1. IRESSA [Suspect]
     Indication: NON-SMALL CELL LUNG CANCER
     Route: 048
     Dates: start: 20040323, end: 20040430
  2. CODEINE [Concomitant]
     Indication: COUGH
     Dates: start: 20040413, end: 20040423
  3. COUGH SYR. [Concomitant]
     Indication: COUGH
     Dates: start: 20040413, end: 20040423
  4. MACFERAN [Concomitant]
     Indication: NAUSEA
     Dates: start: 20040515, end: 20040524

REACTIONS (4)
  - COUGH [None]
  - DYSPNOEA [None]
  - HAEMOPTYSIS [None]
  - PRODUCTIVE COUGH [None]
